FAERS Safety Report 6680501-6 (Version None)
Quarter: 2010Q2

REPORT INFORMATION
  Report Type: 
  Country: None (occurrence: None)
  Receive Date: 20100414
  Receipt Date: 20100405
  Transmission Date: 20101027
  Serious: No
  Sender: FDA-Public Use
  Company Number: US-BIOGENIDEC-2010BI011506

PATIENT
  Age: 52 Year
  Sex: Female

DRUGS (3)
  1. TYSABRI [Suspect]
     Indication: MULTIPLE SCLEROSIS
     Route: 042
     Dates: start: 20080228, end: 20080925
  2. TYSABRI [Suspect]
     Route: 042
     Dates: start: 20090507
  3. AVONEX [Concomitant]
     Indication: MULTIPLE SCLEROSIS
     Route: 030

REACTIONS (5)
  - ALOPECIA [None]
  - DECREASED APPETITE [None]
  - FATIGUE [None]
  - NAIL DISCOLOURATION [None]
  - WEIGHT DECREASED [None]
